FAERS Safety Report 9643077 (Version 1)
Quarter: 2013Q4

REPORT INFORMATION
  Report Type: Spontaneous
  Country: US (occurrence: None)
  Receive Date: 20131023
  Receipt Date: 20131023
  Transmission Date: 20140711
  Serious: Yes (Hospitalization)
  Sender: FDA-Public Use
  Company Number: None

PATIENT
  Sex: Female

DRUGS (24)
  1. TOLVAPTAN [Suspect]
     Route: 048
     Dates: start: 20130826, end: 20130902
  2. CLONIDINE [Concomitant]
  3. NEXIUM [Concomitant]
  4. FUROSEMIDE [Concomitant]
  5. ATARAX [Concomitant]
  6. LANTUS [Concomitant]
  7. HUMALOG SLIDING SCALE [Concomitant]
  8. LACTULOSE [Concomitant]
  9. LORAZEPAM [Concomitant]
  10. ZINC [Concomitant]
  11. VITAMIN A [Concomitant]
  12. ERGOCALCIFEROL [Concomitant]
  13. TYLENOL [Concomitant]
  14. ALEVE [Concomitant]
  15. MULTIVITAMIN [Concomitant]
  16. XIFAXAN [Concomitant]
  17. CHOLESTYRAMINE [Concomitant]
  18. ATENOLOL [Concomitant]
  19. CETIRIZINE [Concomitant]
  20. SPIRONOLACTONE [Concomitant]
  21. LEVOTHYROXINE [Concomitant]
  22. NADOLOL [Concomitant]
  23. SIMVASTATIN [Concomitant]
  24. MULTIVITAMIN [Concomitant]

REACTIONS (3)
  - Pleural effusion [None]
  - Nausea [None]
  - Diarrhoea [None]
